FAERS Safety Report 4769845-2 (Version None)
Quarter: 2005Q3

REPORT INFORMATION
  Report Type: 
  Country: None (occurrence: None)
  Receive Date: 20050912
  Receipt Date: 20050726
  Transmission Date: 20060218
  Serious: No
  Sender: FDA-Public Use
  Company Number: 2005-01589

PATIENT
  Age: 71 Year
  Sex: Male
  Weight: 99.3 kg

DRUGS (3)
  1. VELCADE [Suspect]
     Indication: MULTIPLE MYELOMA
     Dates: end: 20050708
  2. DECADRON [Concomitant]
  3. LANTUS [Concomitant]

REACTIONS (2)
  - HYPOGLYCAEMIA [None]
  - SYNCOPE [None]
